FAERS Safety Report 20335135 (Version 2)
Quarter: 2022Q1

REPORT INFORMATION
  Report Type: Spontaneous
  Country: US (occurrence: None)
  Receive Date: 20220114
  Receipt Date: 20220211
  Transmission Date: 20220423
  Serious: Yes (Hospitalization, Other)
  Sender: FDA-Public Use
  Company Number: US-MLMSERVICE-20220103-3298761-1

PATIENT
  Age: 29 Year
  Sex: Female

DRUGS (19)
  1. LIDOCAINE [Suspect]
     Active Substance: LIDOCAINE
     Indication: Cancer pain
     Dosage: LOADING DOSE OF 2 MG/KG
     Route: 042
  2. LIDOCAINE [Suspect]
     Active Substance: LIDOCAINE
     Dosage: CONTINUOUS INFUSION OF 1MG/KG/HOUR
     Route: 042
  3. LIDOCAINE [Suspect]
     Active Substance: LIDOCAINE
     Dosage: TITRATED TO A MAXIMUM OF 1.6MG/KG/HOUR ON HOSPITAL DAY 17
     Route: 042
  4. LIDOCAINE [Suspect]
     Active Substance: LIDOCAINE
     Dosage: DECREASED TO 1MG/KG/HOUR ON HOSPITAL DAY 17
     Route: 042
  5. LIDOCAINE [Suspect]
     Active Substance: LIDOCAINE
     Dosage: REDUCED DOSE CONTINUOUS INFUSION
     Route: 041
  6. DEXAMETHASONE [Suspect]
     Active Substance: DEXAMETHASONE
     Indication: Spinal cord compression
     Route: 042
  7. DEXAMETHASONE [Suspect]
     Active Substance: DEXAMETHASONE
     Indication: Pain
     Route: 042
  8. DEXAMETHASONE [Suspect]
     Active Substance: DEXAMETHASONE
     Dosage: REDUCED TO ONLY DAILY DOSING
     Route: 041
  9. PACLITAXEL [Concomitant]
     Active Substance: PACLITAXEL
     Indication: Ewing^s sarcoma metastatic
     Dosage: UNKNOWN
     Route: 065
  10. HYDROMORPHONE [Concomitant]
     Active Substance: HYDROMORPHONE
     Indication: Cancer pain
     Dosage: UNKNOWN
     Route: 040
  11. HYDROMORPHONE [Concomitant]
     Active Substance: HYDROMORPHONE
     Dosage: UPTITRATION TO A 2.5 MG EVERY 10 MIN AS NEEDED (NO BASAL RATE)
     Route: 040
  12. HYDROMORPHONE [Concomitant]
     Active Substance: HYDROMORPHONE
     Route: 037
  13. METHADONE [Concomitant]
     Active Substance: METHADONE HYDROCHLORIDE
     Indication: Cancer pain
     Dosage: 20/20/30 MG
     Route: 048
  14. ACETAMINOPHEN [Concomitant]
     Active Substance: ACETAMINOPHEN
     Indication: Cancer pain
     Route: 048
  15. DULOXETINE [Concomitant]
     Active Substance: DULOXETINE
     Indication: Cancer pain
     Route: 048
  16. METHOCARBAMOL [Concomitant]
     Active Substance: METHOCARBAMOL
     Indication: Cancer pain
     Route: 048
  17. FENTANYL [Concomitant]
     Active Substance: FENTANYL
     Indication: Cancer pain
     Dosage: UP TO A 150 MCG EVERY 10 MIN AS NEEDED WITH A 25 MCG/HOUR BASAL RATE
     Route: 040
  18. KETAMINE [Concomitant]
     Active Substance: KETAMINE
     Indication: Cancer pain
     Dosage: TITRATED UP TO 0.3 MG/KG/HOUR
     Route: 041
  19. BUPIVACAINE [Concomitant]
     Active Substance: BUPIVACAINE
     Indication: Cancer pain
     Route: 065

REACTIONS (6)
  - Hoigne^s syndrome [Recovering/Resolving]
  - Hypoaesthesia oral [Unknown]
  - Drug level increased [Recovered/Resolved]
  - Hallucination [Recovered/Resolved]
  - Delirium [Recovering/Resolving]
  - Anxiety [Recovering/Resolving]
